FAERS Safety Report 8420863-2 (Version None)
Quarter: 2012Q2

REPORT INFORMATION
  Report Type: 
  Country: None (occurrence: None)
  Receive Date: 20120531
  Receipt Date: 20120523
  Transmission Date: 20120825
  Serious: Yes (Other)
  Sender: FDA-Public Use
  Company Number: ADR-2012-00656

PATIENT
  Sex: Female

DRUGS (5)
  1. FENTANYL [Concomitant]
  2. BUPIVACAINE HCL [Concomitant]
  3. MORPHINE [Concomitant]
  4. BACLOFEN [Suspect]
     Indication: SURGERY
  5. BACLOFEN [Suspect]
     Indication: PAIN

REACTIONS (3)
  - NAUSEA [None]
  - HEADACHE [None]
  - HYPOAESTHESIA [None]
